FAERS Safety Report 17258663 (Version 2)
Quarter: 2020Q1

REPORT INFORMATION
  Report Type: Spontaneous
  Country: ID (occurrence: ID)
  Receive Date: 20200110
  Receipt Date: 20200120
  Transmission Date: 20200409
  Serious: Yes (Death, Disabling, Other)
  Sender: FDA-Public Use
  Company Number: ID-ASTRAZENECA-2020SE04125

PATIENT
  Sex: Male

DRUGS (2)
  1. IRESSA [Suspect]
     Active Substance: GEFITINIB
     Route: 048
  2. TAGRISSO [Suspect]
     Active Substance: OSIMERTINIB
     Indication: NON-SMALL CELL LUNG CANCER
     Route: 048
     Dates: start: 20200101

REACTIONS (8)
  - Dysuria [Fatal]
  - Cough [Fatal]
  - Dysphonia [Fatal]
  - Dysstasia [Fatal]
  - Metastases to spine [Fatal]
  - Metastasis [Fatal]
  - Onychoclasis [Fatal]
  - Decreased appetite [Fatal]
